FAERS Safety Report 24079476 (Version 2)
Quarter: 2024Q4

REPORT INFORMATION
  Report Type: Report from Study
  Country: CA (occurrence: CA)
  Receive Date: 20240711
  Receipt Date: 20241028
  Transmission Date: 20250115
  Serious: Yes (Other)
  Sender: ALEXION PHARMACEUTICALS
  Company Number: 2024A154565

PATIENT
  Age: 79 Year

DRUGS (8)
  1. BENRALIZUMAB [Suspect]
     Active Substance: BENRALIZUMAB
     Indication: Asthma
     Dosage: 30 MILLIGRAM
  2. BENRALIZUMAB [Suspect]
     Active Substance: BENRALIZUMAB
     Dosage: 30 MILLIGRAM
  3. BENRALIZUMAB [Suspect]
     Active Substance: BENRALIZUMAB
     Dosage: 30 MILLIGRAM
  4. BENRALIZUMAB [Suspect]
     Active Substance: BENRALIZUMAB
     Dosage: 30 MILLIGRAM
  5. VENTOLIN [Concomitant]
     Active Substance: ALBUTEROL SULFATE
  6. ZENHALE [Concomitant]
     Active Substance: FORMOTEROL FUMARATE\MOMETASONE FUROATE
     Dosage: 200/5MCG, 1 PUFF BID
  7. IPRATROPIUM BROMIDE [Concomitant]
     Active Substance: IPRATROPIUM BROMIDE
     Dosage: UNKNOWN
  8. SINGULAIR [Concomitant]
     Active Substance: MONTELUKAST SODIUM
     Dosage: 10 MILLIGRAM, QD

REACTIONS (1)
  - Hypertension [Unknown]
